FAERS Safety Report 23098016 (Version 2)
Quarter: 2023Q4

REPORT INFORMATION
  Report Type: Spontaneous
  Country: US (occurrence: US)
  Receive Date: 20231023
  Receipt Date: 20231208
  Transmission Date: 20240109
  Serious: No
  Sender: FDA-Public Use
  Company Number: US-BAYER-2023A145258

PATIENT
  Age: 70 Year
  Sex: Male

DRUGS (1)
  1. KOVALTRY [Suspect]
     Active Substance: ANTIHEMOPHILIC FACTOR, HUMAN RECOMBINANT
     Dosage: 1 DOSE OF FACTOR

REACTIONS (2)
  - Arthralgia [Recovered/Resolved]
  - Bleeding varicose vein [None]

NARRATIVE: CASE EVENT DATE: 20231009
